FAERS Safety Report 11101217 (Version 4)
Quarter: 2016Q3

REPORT INFORMATION
  Report Type: Report from Study
  Country: US (occurrence: US)
  Receive Date: 20150508
  Receipt Date: 20160715
  Transmission Date: 20161109
  Serious: Yes (Hospitalization)
  Sender: FDA-Public Use
  Company Number: US-INCYTE CORPORATION-2015IN001884

PATIENT
  Age: 52 Year
  Sex: Female
  Weight: 47.3 kg

DRUGS (7)
  1. ZOFRAN [Concomitant]
     Active Substance: ONDANSETRON HYDROCHLORIDE
     Indication: NAUSEA
     Dosage: 3 MG, PRN
     Route: 048
     Dates: start: 20150209
  2. INCB18424 (RUXOLITINIB) [Suspect]
     Active Substance: RUXOLITINIB
     Indication: COLORECTAL CANCER METASTATIC
     Dosage: 15 MG, BID
     Route: 048
     Dates: start: 20150401, end: 20150421
  3. OXYCODONE [Concomitant]
     Active Substance: OXYCODONE
     Indication: ABDOMINAL PAIN
     Dosage: 20 MG Q4H
     Route: 048
     Dates: start: 20150209
  4. COMPAZINE [Concomitant]
     Active Substance: PROCHLORPERAZINE MALEATE
     Indication: NAUSEA
     Dosage: 10 MG, PRN
     Route: 048
     Dates: start: 20150209
  5. COMPAZINE [Concomitant]
     Active Substance: PROCHLORPERAZINE MALEATE
     Indication: VOMITING
  6. ZOFRAN [Concomitant]
     Active Substance: ONDANSETRON HYDROCHLORIDE
     Indication: VOMITING
  7. REGORAFENIB [Suspect]
     Active Substance: REGORAFENIB
     Dosage: 160 MG, QD
     Route: 048
     Dates: start: 20150401, end: 20150421

REACTIONS (6)
  - Nausea [Recovered/Resolved]
  - Vomiting [None]
  - Abdominal pain [Recovered/Resolved]
  - Seroma [Recovered/Resolved]
  - Intestinal perforation [Recovered/Resolved]
  - Vomiting [Recovered/Resolved]

NARRATIVE: CASE EVENT DATE: 20150427
